FAERS Safety Report 6925292-6 (Version None)
Quarter: 2010Q3

REPORT INFORMATION
  Report Type: 
  Country: None (occurrence: None)
  Receive Date: 20100816
  Receipt Date: 20100811
  Transmission Date: 20110219
  Serious: Yes (Death, Hospitalization, Other)
  Sender: FDA-Public Use
  Company Number: US-PFIZER INC-2010097437

PATIENT
  Sex: Female

DRUGS (1)
  1. GEODON [Suspect]
     Dosage: 80 MG, 2X/DAY
     Dates: start: 20010101, end: 20090101

REACTIONS (4)
  - DIABETES MELLITUS [None]
  - HYPERGLYCAEMIA [None]
  - TOXIC SHOCK SYNDROME [None]
  - WEIGHT INCREASED [None]
